FAERS Safety Report 20102596 (Version 1)
Quarter: 2021Q4

REPORT INFORMATION
  Report Type: Spontaneous
  Country: SE (occurrence: SE)
  Receive Date: 20211123
  Receipt Date: 20211123
  Transmission Date: 20220303
  Serious: Yes (Other)
  Sender: FDA-Public Use
  Company Number: SE-VALIDUS PHARMACEUTICALS LLC-SE-VDP-2021-014576

PATIENT
  Age: 69 Year
  Sex: Female

DRUGS (4)
  1. CEFOTAXIME SODIUM [Suspect]
     Active Substance: CEFOTAXIME SODIUM
     Indication: Erysipelas
     Dosage: UNK, TID
     Route: 042
     Dates: start: 20211012, end: 20211020
  2. CEFADROXIL [Suspect]
     Active Substance: CEFADROXIL
     Indication: Erysipelas
     Dosage: 2000 MG, QD
     Route: 048
     Dates: start: 20211018, end: 20211019
  3. FLUCONAZOLE [Concomitant]
     Active Substance: FLUCONAZOLE
     Indication: Product used for unknown indication
     Dosage: UNK
     Route: 065
     Dates: start: 20211013
  4. BUMETANIDE [Concomitant]
     Active Substance: BUMETANIDE
     Indication: Product used for unknown indication
     Dosage: UNK
     Route: 065
     Dates: start: 20140626

REACTIONS (2)
  - Drug eruption [Recovering/Resolving]
  - Pruritus allergic [Recovering/Resolving]

NARRATIVE: CASE EVENT DATE: 20211020
